FAERS Safety Report 5307736-9 (Version None)
Quarter: 2007Q2

REPORT INFORMATION
  Report Type: 
  Country: None (occurrence: None)
  Receive Date: 20070418
  Receipt Date: 20070411
  Transmission Date: 20071010
  Serious: Yes (Life-Threatening, Hospitalization)
  Sender: FDA-Public Use
  Company Number: 2007US000300

PATIENT
  Age: 52 Year
  Sex: Female

DRUGS (19)
  1. PROGRAF [Suspect]
     Indication: PROPHYLAXIS AGAINST TRANSPLANT REJECTION
     Dosage: 0.5 MG, ORAL
     Route: 048
     Dates: start: 20060904, end: 20070211
  2. MYCOPHENOLATE MOFETIL [Suspect]
     Indication: PROPHYLAXIS AGAINST TRANSPLANT REJECTION
     Dosage: 1000 MG, BID, ORAL
     Route: 048
     Dates: start: 20060904
  3. PREDNISONE TAB [Suspect]
     Indication: PROPHYLAXIS AGAINST TRANSPLANT REJECTION
     Dosage: 2.5 MG, UID/QD, ORAL
     Route: 048
     Dates: start: 20060904
  4. SEPTRA [Concomitant]
  5. PREVACID [Concomitant]
  6. MVI (VITAMINS NOS) [Concomitant]
  7. LASIX [Concomitant]
  8. LEVAQUIN [Concomitant]
  9. COUMADIN [Concomitant]
  10. AMIODARONE HCL [Concomitant]
  11. COREG [Concomitant]
  12. HEPARIN [Concomitant]
  13. DIURIL (CHLOROTHIAZIDE) [Concomitant]
  14. HYDRALAZINE HCL [Concomitant]
  15. IMDUR [Concomitant]
  16. DOBUTAMINE (DOBUTAMINE) [Concomitant]
  17. TORSEMIDE (TORSEMIDE) [Concomitant]
  18. METOPROLOL TARTRATE [Concomitant]
  19. LEVENOX (ENOXAPARIN SODIUM) [Concomitant]

REACTIONS (7)
  - ATRIAL FIBRILLATION [None]
  - CARDIAC FAILURE CONGESTIVE [None]
  - MYOCARDITIS [None]
  - PNEUMONIA [None]
  - PULSE ABSENT [None]
  - RENAL FAILURE [None]
  - VENTRICULAR TACHYCARDIA [None]
